FAERS Safety Report 18606793 (Version 1)
Quarter: 2020Q4

REPORT INFORMATION
  Report Type: Report from Study
  Country: US (occurrence: US)
  Receive Date: 20201211
  Receipt Date: 20201211
  Transmission Date: 20210114
  Serious: Yes (Other)
  Sender: FDA-Public Use
  Company Number: US-BRISTOL-MYERS SQUIBB COMPANY-BMS-2020-105079

PATIENT
  Sex: Male

DRUGS (2)
  1. VYNDAQEL [Suspect]
     Active Substance: TAFAMIDIS MEGLUMINE
     Indication: AMYLOIDOSIS
     Dosage: 80 MILLIGRAM
     Route: 065
  2. APIXABAN [Suspect]
     Active Substance: APIXABAN
     Indication: PRODUCT USED FOR UNKNOWN INDICATION
     Route: 065

REACTIONS (10)
  - Neuropathy peripheral [Recovering/Resolving]
  - Organising pneumonia [Unknown]
  - Peripheral artery aneurysm [Unknown]
  - Aortic valve incompetence [Unknown]
  - Arteriovenous fistula [Unknown]
  - Memory impairment [Unknown]
  - Hypotension [Unknown]
  - Aortic dissection [Unknown]
  - Cerebral artery occlusion [Unknown]
  - N-terminal prohormone brain natriuretic peptide increased [Unknown]
